FAERS Safety Report 4965237-1 (Version None)
Quarter: 2006Q1

REPORT INFORMATION
  Report Type: 
  Country: None (occurrence: None)
  Receive Date: 20060130
  Receipt Date: 20050906
  Transmission Date: 20060701
  Serious: No
  Sender: FDA-Public Use
  Company Number: COT_0277_2005

PATIENT
  Age: 50 Year
  Sex: Male
  Weight: 98.8842 kg

DRUGS (11)
  1. VENTAVIS [Suspect]
     Indication: PULMONARY HYPERTENSION
     Dosage: 2.5 MCG ONCE IH
     Route: 055
     Dates: start: 20050728, end: 20050728
  2. VENTAVIS [Suspect]
     Indication: PULMONARY HYPERTENSION
     Dosage: 5 MCG 6 TO 9X/DAY IH
     Route: 055
     Dates: start: 20050728
  3. VENTAVIS [Suspect]
     Indication: PULMONARY HYPERTENSION
     Dosage: 5 MG 6TO9X /DAY IH
     Route: 055
     Dates: start: 20050728
  4. VENTAVIS [Suspect]
     Indication: PULMONARY HYPERTENSION
     Dosage: 5 MCG 6 TO 9X/DAY IH
     Route: 055
     Dates: start: 20050728
  5. VENTAVIS [Suspect]
     Indication: PULMONARY HYPERTENSION
     Dosage: 5 MCG 6 TO 9X/DAY IH
     Route: 055
     Dates: start: 20050728
  6. VENTAVIS [Suspect]
     Indication: PULMONARY HYPERTENSION
     Dosage: 6 MCG 6TO9X/DAY IH
     Route: 055
     Dates: start: 20050728
  7. SPIRONOLACTONE [Concomitant]
  8. FUROSEMIDE [Concomitant]
  9. BENZONATATE [Concomitant]
  10. POTASSIUM CHLORIDE [Concomitant]
  11. CALCIUM CARBONATE [Concomitant]

REACTIONS (1)
  - PRURITUS [None]
